FAERS Safety Report 22081330 (Version 1)
Quarter: 2023Q1

REPORT INFORMATION
  Report Type: Spontaneous
  Country: CA (occurrence: CA)
  Receive Date: 20230309
  Receipt Date: 20230309
  Transmission Date: 20230418
  Serious: Yes (Hospitalization, Other)
  Sender: FDA-Public Use
  Company Number: CA-HLS-202300474

PATIENT
  Sex: Male

DRUGS (19)
  1. BUSPIRONE [Suspect]
     Active Substance: BUSPIRONE HYDROCHLORIDE
     Indication: Obsessive-compulsive disorder
     Dosage: AMOUNT: 60 MILLIGRAM?TABLETS DOSAGE FORM
     Route: 065
  2. BUSPIRONE [Suspect]
     Active Substance: BUSPIRONE HYDROCHLORIDE
     Indication: Psychotic disorder
     Dosage: AMOUNT: 60 MILLIGRAM?TABLETS DOSAGE FORM
     Route: 065
  3. BUSPIRONE [Suspect]
     Active Substance: BUSPIRONE HYDROCHLORIDE
     Indication: Schizoaffective disorder bipolar type
     Dosage: AMOUNT: 60 MILLIGRAM?TABLETS DOSAGE FORM
     Route: 065
  4. CLOZAPINE [Suspect]
     Active Substance: CLOZAPINE
     Indication: Obsessive-compulsive disorder
     Dosage: 1 EVERY 24 HOURS?AMOUNT: 150 MILLIGRAM
     Route: 065
  5. CLOZAPINE [Suspect]
     Active Substance: CLOZAPINE
     Indication: Psychotic disorder
     Dosage: 1 EVERY 24 HOURS?AMOUNT: 150 MILLIGRAM
     Route: 065
  6. CLOZAPINE [Suspect]
     Active Substance: CLOZAPINE
     Indication: Schizoaffective disorder bipolar type
     Dosage: 1 EVERY 24 HOURS?AMOUNT: 150 MILLIGRAM
     Route: 065
  7. CLOZAPINE [Suspect]
     Active Substance: CLOZAPINE
     Indication: Obsessive-compulsive disorder
     Dosage: 1 EVERY 24 HOURS?AMOUNT: 625 MILLIGRAM?TABLETS DOSAGE FORM
     Route: 065
  8. CLOZAPINE [Suspect]
     Active Substance: CLOZAPINE
     Indication: Psychotic disorder
     Dosage: 1 EVERY 24 HOURS?AMOUNT: 625 MILLIGRAM?TABLETS DOSAGE FORM
     Route: 065
  9. CLOZAPINE [Suspect]
     Active Substance: CLOZAPINE
     Indication: Schizoaffective disorder bipolar type
     Dosage: 1 EVERY 24 HOURS?AMOUNT: 625 MILLIGRAM?TABLETS DOSAGE FORM
     Route: 065
  10. DEPAKOTE [Suspect]
     Active Substance: DIVALPROEX SODIUM
     Indication: Obsessive-compulsive disorder
     Dosage: AMOUNT: 1500 MILLIGRAM?NOT SPECIFIED DOSAGE FORM
     Route: 065
  11. DEPAKOTE [Suspect]
     Active Substance: DIVALPROEX SODIUM
     Indication: Psychotic disorder
     Dosage: AMOUNT: 1500 MILLIGRAM?NOT SPECIFIED DOSAGE FORM
     Route: 065
  12. DEPAKOTE [Suspect]
     Active Substance: DIVALPROEX SODIUM
     Indication: Schizoaffective disorder bipolar type
     Dosage: AMOUNT: 1500 MILLIGRAM?NOT SPECIFIED DOSAGE FORM
     Route: 065
  13. FLUOXETINE HYDROCHLORIDE [Suspect]
     Active Substance: FLUOXETINE HYDROCHLORIDE
     Indication: Obsessive-compulsive disorder
     Dosage: AMOUNT: 60 MILLIGRAM
     Route: 065
  14. FLUVOXAMINE [Suspect]
     Active Substance: FLUVOXAMINE
     Indication: Obsessive-compulsive disorder
     Dosage: 1 EVERY 24 HOURS?AMOUNT: 200 MILLIGRAM
     Route: 065
  15. FLUVOXAMINE [Suspect]
     Active Substance: FLUVOXAMINE
     Indication: Obsessive-compulsive disorder
     Dosage: TABLETS DOSAGE FORM
     Route: 065
  16. OXAZEPAM [Suspect]
     Active Substance: OXAZEPAM
     Indication: Obsessive-compulsive disorder
     Dosage: AMOUNT: 20 MILLIGRAM?TABLETS DOSAGE FORM
     Route: 065
  17. PROCYCLIDINE [Suspect]
     Active Substance: PROCYCLIDINE
     Indication: Obsessive-compulsive disorder
     Route: 065
  18. ZOPICLONE [Suspect]
     Active Substance: ZOPICLONE
     Indication: Obsessive-compulsive disorder
     Dosage: AMOUNT: 15 MILLIGRAM?TABLETS DOSAGE FORM
     Route: 065
  19. ZUCLOPENTHIXOL DECANOATE [Suspect]
     Active Substance: ZUCLOPENTHIXOL DECANOATE
     Indication: Obsessive-compulsive disorder
     Dosage: 1 EVERY 1 WEEKS?AMOUNT: 450 MILLIGRAM
     Route: 065

REACTIONS (11)
  - Aggression [Unknown]
  - Antipsychotic drug level increased [Unknown]
  - Condition aggravated [Unknown]
  - Delirium [Unknown]
  - Disorientation [Unknown]
  - Drug interaction [Unknown]
  - Irritability [Unknown]
  - Obesity [Unknown]
  - Orthostatic hypotension [Unknown]
  - Sedation [Unknown]
  - Tardive dyskinesia [Unknown]
